FAERS Safety Report 20457108 (Version 1)
Quarter: 2022Q1

REPORT INFORMATION
  Report Type: Spontaneous
  Country: US (occurrence: US)
  Receive Date: 20220210
  Receipt Date: 20220210
  Transmission Date: 20220424
  Serious: No
  Sender: FDA-Public Use
  Company Number: US-PERRIGO-21US011461

PATIENT
  Sex: Male

DRUGS (2)
  1. CETIRIZINE HYDROCHLORIDE [Suspect]
     Active Substance: CETIRIZINE HYDROCHLORIDE
     Indication: Product used for unknown indication
     Dosage: UNKNOWN, UNKNOWN
     Route: 048
     Dates: start: 202108
  2. CETIRIZINE HYDROCHLORIDE [Suspect]
     Active Substance: CETIRIZINE HYDROCHLORIDE
     Dosage: UNKNOWN, UNKNOWN
     Route: 048

REACTIONS (1)
  - Therapeutic product effect decreased [Unknown]

NARRATIVE: CASE EVENT DATE: 20210801
